FAERS Safety Report 7717476-4 (Version None)
Quarter: 2011Q3

REPORT INFORMATION
  Report Type: 
  Country: None (occurrence: None)
  Receive Date: 20110824
  Receipt Date: 20110815
  Transmission Date: 20111222
  Serious: Yes (Other)
  Sender: FDA-Public Use
  Company Number: OSCN-PR-1108S-0169

PATIENT

DRUGS (10)
  1. GADOLINIUM (UNSPECIFIED) (GADOLINIUM) [Suspect]
     Dates: start: 20021211, end: 20021211
  2. GADOLINIUM (UNSPECIFIED) (GADOLINIUM) [Suspect]
     Dates: start: 20020712, end: 20020712
  3. GADOLINIUM (UNSPECIFIED) (GADOLINIUM) [Suspect]
     Dates: start: 19971003, end: 19971003
  4. GADOLINIUM (UNSPECIFIED) (GADOLINIUM) [Suspect]
     Dates: start: 19990216, end: 19990216
  5. GADOLINIUM (UNSPECIFIED) (GADOLINIUM) [Suspect]
     Dates: start: 20020825, end: 20020825
  6. GADOLINIUM (UNSPECIFIED) (GADOLINIUM) [Suspect]
     Dates: start: 20031101, end: 20031101
  7. OMNISCAN [Suspect]
     Indication: PRODUCT USED FOR UNKNOWN INDICATION
     Dosage: NR, SINGLE DOSE, UNKNOWN
     Dates: start: 20021204, end: 20021204
  8. OMNISCAN [Suspect]
     Indication: PRODUCT USED FOR UNKNOWN INDICATION
     Dosage: NR, SINGLE DOSE, UNKNOWN
     Dates: start: 20040916, end: 20040916
  9. OMNISCAN [Suspect]
     Indication: PRODUCT USED FOR UNKNOWN INDICATION
     Dosage: NR, SINGLE DOSE, UNKNOWN
     Dates: start: 20021211, end: 20021211
  10. OMNISCAN [Suspect]
     Indication: PRODUCT USED FOR UNKNOWN INDICATION
     Dosage: NR, SINGLE DOSE, UNKNOWN
     Dates: start: 20031101, end: 20031101

REACTIONS (1)
  - NEPHROGENIC SYSTEMIC FIBROSIS [None]
